FAERS Safety Report 22980466 (Version 2)
Quarter: 2023Q4

REPORT INFORMATION
  Report Type: Spontaneous
  Country: US (occurrence: None)
  Receive Date: 20230925
  Receipt Date: 20231030
  Transmission Date: 20240109
  Serious: Yes (Hospitalization)
  Sender: FDA-Public Use
  Company Number: US-FARMAPROD-202308-2610

PATIENT
  Age: 39 Year
  Sex: Female

DRUGS (19)
  1. OXERVATE [Suspect]
     Active Substance: CENEGERMIN-BKBJ
     Indication: Neurotrophic keratopathy
     Route: 047
     Dates: start: 20230816
  2. BLINK TEARS [Concomitant]
     Active Substance: POLYETHYLENE GLYCOL 400
  3. ALLEGRA ALLERGY [Concomitant]
     Active Substance: FEXOFENADINE HYDROCHLORIDE
  4. NASACORT [Concomitant]
     Active Substance: TRIAMCINOLONE ACETONIDE
  5. FISH OIL\OMEGA-3 FATTY ACIDS [Concomitant]
     Active Substance: FISH OIL\OMEGA-3 FATTY ACIDS
  6. DIETARY SUPPLEMENT [Concomitant]
     Active Substance: DIETARY SUPPLEMENT
     Dosage: 3 G/3.8 G
  7. CALCIUM GLYCEROPHOSPHATE [Concomitant]
     Active Substance: CALCIUM GLYCEROPHOSPHATE
  8. MYFEMBREE [Concomitant]
     Active Substance: ESTRADIOL HEMIHYDRATE\NORETHINDRONE ACETATE\RELUGOLIX
  9. TROSPIUM CHLORIDE [Concomitant]
     Active Substance: TROSPIUM CHLORIDE
     Dosage: EXTENDED RELEASE.
  10. ESTRADIOL [Concomitant]
     Active Substance: ESTRADIOL
  11. PROPRANOLOL HYDROCHLORIDE [Concomitant]
     Active Substance: PROPRANOLOL HYDROCHLORIDE
  12. PEPCID [Concomitant]
     Active Substance: FAMOTIDINE
  13. SINGULAIR [Concomitant]
     Active Substance: MONTELUKAST SODIUM
  14. NEXIUM [Concomitant]
     Active Substance: ESOMEPRAZOLE MAGNESIUM
  15. DIAZEPAM [Concomitant]
     Active Substance: DIAZEPAM
     Dosage: KIT
  16. OMEPRAZOLE [Concomitant]
     Active Substance: OMEPRAZOLE
  17. EMGALITY [Concomitant]
     Active Substance: GALCANEZUMAB-GNLM
     Dosage: PEN INJECTOR.
  18. ERYTHROMYCIN [Concomitant]
     Active Substance: ERYTHROMYCIN
  19. MOXIFLOXACIN [Concomitant]
     Active Substance: MOXIFLOXACIN

REACTIONS (3)
  - Hysterectomy [Unknown]
  - Eye pain [Unknown]
  - Wrong technique in product usage process [Unknown]

NARRATIVE: CASE EVENT DATE: 20230912
